FAERS Safety Report 4693777-1 (Version None)
Quarter: 2005Q2

REPORT INFORMATION
  Report Type: 
  Country: None (occurrence: None)
  Receive Date: 20050616
  Receipt Date: 20050603
  Transmission Date: 20051028
  Serious: Yes (Death, Hospitalization)
  Sender: FDA-Public Use
  Company Number: 2004120959

PATIENT
  Age: 68 Year
  Sex: Female
  Weight: 37 kg

DRUGS (4)
  1. IRINOTECAN HCL [Suspect]
     Indication: OVARIAN CANCER
     Dosage: SEE IMAGE
     Route: 042
     Dates: start: 20040316, end: 20040327
  2. GRAN (FILGRASTIM) [Suspect]
     Indication: OVARIAN CANCER
     Dosage: 75 MCG, INTRAVENOUS
     Route: 042
     Dates: start: 20040327, end: 20040331
  3. ETOPOSIDE [Suspect]
     Indication: OVARIAN CANCER
     Dosage: 50 MG, ORAL
     Route: 048
     Dates: start: 20040722, end: 20040809
  4. TAXOTERE [Concomitant]

REACTIONS (18)
  - ANOREXIA [None]
  - BONE MARROW DEPRESSION [None]
  - CONDITION AGGRAVATED [None]
  - CYANOSIS [None]
  - DISEASE PROGRESSION [None]
  - DISEASE RECURRENCE [None]
  - INFECTION [None]
  - INTERSTITIAL LUNG DISEASE [None]
  - MALAISE [None]
  - MALNUTRITION [None]
  - METASTASES TO SPLEEN [None]
  - NAUSEA [None]
  - NEOPLASM [None]
  - NEUTROPENIA [None]
  - OVARIAN CANCER [None]
  - RENAL IMPAIRMENT [None]
  - RESPIRATORY FAILURE [None]
  - WHITE BLOOD CELL COUNT DECREASED [None]
